FAERS Safety Report 5646164-3 (Version None)
Quarter: 2008Q1

REPORT INFORMATION
  Report Type: 
  Country: None (occurrence: None)
  Receive Date: 20080229
  Receipt Date: 20080222
  Transmission Date: 20080703
  Serious: Yes (Death, Other)
  Sender: FDA-Public Use
  Company Number: FR-PFIZER INC-2008017139

PATIENT
  Sex: Female

DRUGS (3)
  1. TAHOR [Suspect]
     Indication: DYSLIPIDAEMIA
  2. BETA BLOCKING AGENTS [Concomitant]
  3. ALL OTHER THERAPEUTIC PRODUCTS [Concomitant]

REACTIONS (5)
  - BLOOD CREATINE PHOSPHOKINASE INCREASED [None]
  - FATIGUE [None]
  - PAIN [None]
  - RENAL FAILURE [None]
  - RHABDOMYOLYSIS [None]
